FAERS Safety Report 19033915 (Version 1)
Quarter: 2021Q1

REPORT INFORMATION
  Report Type: Spontaneous
  Country: GB (occurrence: GB)
  Receive Date: 20210320
  Receipt Date: 20210320
  Transmission Date: 20210420
  Serious: Yes (Death)
  Sender: FDA-Public Use
  Company Number: GB-CELLTRION INC.-2021GB003477

PATIENT

DRUGS (9)
  1. PREDNISOLONE. [Suspect]
     Active Substance: PREDNISOLONE
     Indication: NON-HODGKIN^S LYMPHOMA UNSPECIFIED HISTOLOGY AGGRESSIVE
     Dosage: 40 MG/M2, DAY 1
  2. RITUXIMAB (UNKNOWN) [Suspect]
     Active Substance: RITUXIMAB
     Indication: NON-HODGKIN^S LYMPHOMA UNSPECIFIED HISTOLOGY AGGRESSIVE
     Dosage: 375 MG/M2, DAY 1 OF EACH CYCLE
  3. PREDNISOLONE. [Suspect]
     Active Substance: PREDNISOLONE
     Dosage: 40 MG/M2, DAY 2
  4. PREDNISOLONE. [Suspect]
     Active Substance: PREDNISOLONE
     Dosage: 40 MG/M2, DAY 3
  5. CYCLOPHOSPHAMIDE. [Suspect]
     Active Substance: CYCLOPHOSPHAMIDE
     Indication: NON-HODGKIN^S LYMPHOMA UNSPECIFIED HISTOLOGY AGGRESSIVE
     Dosage: 400 MG/M2, DAY 1 OF EACH CYCLE
  6. DOXORUBICIN [Suspect]
     Active Substance: DOXORUBICIN
     Indication: NON-HODGKIN^S LYMPHOMA UNSPECIFIED HISTOLOGY AGGRESSIVE
     Dosage: 25 MG/M2, DAY 1 OF EACH CYCLE
  7. PREDNISOLONE. [Suspect]
     Active Substance: PREDNISOLONE
     Dosage: 40 MG/M2, DAY 4
  8. PREDNISOLONE. [Suspect]
     Active Substance: PREDNISOLONE
     Dosage: 40 MG/M2, DAY 5
  9. VINCRISTINE [Suspect]
     Active Substance: VINCRISTINE
     Indication: NON-HODGKIN^S LYMPHOMA UNSPECIFIED HISTOLOGY AGGRESSIVE
     Dosage: 1 MG/M2, ON DAY 1 OF EACH CYCLE

REACTIONS (2)
  - Disease progression [Fatal]
  - Non-Hodgkin^s lymphoma unspecified histology aggressive [Fatal]
